FAERS Safety Report 7305354-4 (Version None)
Quarter: 2011Q1

REPORT INFORMATION
  Report Type: 
  Country: None (occurrence: None)
  Receive Date: 20110222
  Receipt Date: 20110210
  Transmission Date: 20110831
  Serious: Yes (Other)
  Sender: FDA-Public Use
  Company Number: PHHY2011FR06556

PATIENT
  Sex: Male
  Weight: 85 kg

DRUGS (9)
  1. LYRICA [Concomitant]
  2. EXELON [Suspect]
     Indication: DEMENTIA
     Dosage: 9.5 MG / 24 H
     Route: 062
     Dates: start: 20091103, end: 20100401
  3. ASPIRIN [Concomitant]
     Dosage: UNK
  4. ISKEDYL FORT [Suspect]
     Indication: VASODILATATION
     Dosage: 1 DF, BID
     Dates: end: 20100201
  5. INSULINE [Concomitant]
     Dosage: UNK
  6. NEXIUM [Concomitant]
  7. RAMIPRIL [Concomitant]
     Dosage: UNK
  8. AMLOR [Concomitant]
     Dosage: UNK
  9. GLUCOR [Suspect]
     Indication: DIABETES MELLITUS
     Dosage: 50 MG, TID
     Dates: end: 20100201

REACTIONS (7)
  - URTICARIA [None]
  - ERYTHEMA [None]
  - SKIN ULCER [None]
  - ECZEMA [None]
  - DERMATITIS [None]
  - SKIN LESION [None]
  - TOXIC SKIN ERUPTION [None]
